FAERS Safety Report 21265104 (Version 1)
Quarter: 2022Q3

REPORT INFORMATION
  Report Type: Spontaneous
  Country: US (occurrence: None)
  Receive Date: 20220826
  Receipt Date: 20220826
  Transmission Date: 20221026
  Serious: No
  Sender: FDA-Public Use
  Company Number: None

PATIENT
  Age: 67 Year
  Sex: Male

DRUGS (11)
  1. VELTASSA [Suspect]
     Active Substance: PATIROMER
     Dates: start: 20210209, end: 20220805
  2. CARVEDILOL [Concomitant]
     Active Substance: CARVEDILOL
     Dates: start: 20200101
  3. SODIUM BICARBONATE [Concomitant]
     Active Substance: SODIUM BICARBONATE
     Dates: start: 20200101
  4. ACARBOSE [Concomitant]
     Active Substance: ACARBOSE
     Dates: start: 20200101
  5. GLIMEPIRIDE [Concomitant]
     Active Substance: GLIMEPIRIDE
     Dates: start: 20200101
  6. JANUVIA [Concomitant]
     Active Substance: SITAGLIPTIN PHOSPHATE
     Dates: start: 20200101
  7. LEVOTHYROXINE [Concomitant]
     Active Substance: LEVOTHYROXINE
     Dates: start: 20200101
  8. METFORMIN [Concomitant]
     Active Substance: METFORMIN HYDROCHLORIDE
     Dates: start: 20200101
  9. METOCLOPRAMIDE [Concomitant]
     Active Substance: METOCLOPRAMIDE
     Dates: start: 20200101
  10. OMEPRAZOLE [Concomitant]
     Active Substance: OMEPRAZOLE
     Dates: start: 20200101
  11. SIMVASTATIN [Concomitant]
     Active Substance: SIMVASTATIN
     Dates: start: 20200101

REACTIONS (1)
  - Constipation [None]

NARRATIVE: CASE EVENT DATE: 20220805
